FAERS Safety Report 10050820 (Version 2)
Quarter: 2014Q2

REPORT INFORMATION
  Report Type: Spontaneous
  Country: US (occurrence: US)
  Receive Date: 20140401
  Receipt Date: 20140401
  Transmission Date: 20141212
  Serious: No
  Sender: FDA-Public Use
  Company Number: US-ASTRAZENECA-2014SE03352

PATIENT
  Age: 73 Year
  Sex: Male
  Weight: 113.4 kg

DRUGS (16)
  1. NEXIUM [Suspect]
     Indication: DYSPEPSIA
     Route: 048
     Dates: start: 201309, end: 201311
  2. NEXIUM [Suspect]
     Indication: HELICOBACTER INFECTION
     Route: 048
     Dates: start: 201309, end: 201311
  3. NEXIUM [Suspect]
     Indication: GASTROOESOPHAGEAL REFLUX DISEASE
     Route: 048
     Dates: start: 201309, end: 201311
  4. NEXIUM [Suspect]
     Indication: DYSPEPSIA
     Route: 048
     Dates: start: 201401
  5. NEXIUM [Suspect]
     Indication: HELICOBACTER INFECTION
     Route: 048
     Dates: start: 201401
  6. NEXIUM [Suspect]
     Indication: GASTROOESOPHAGEAL REFLUX DISEASE
     Route: 048
     Dates: start: 201401
  7. LISINOPRIL [Suspect]
     Indication: HYPERTENSION
     Route: 048
     Dates: start: 2002
  8. PRILOSEC [Suspect]
     Indication: DYSPEPSIA
     Dosage: OMEPRAZOLE OTC
     Route: 048
     Dates: start: 2013
  9. PRILOSEC [Suspect]
     Indication: HELICOBACTER INFECTION
     Dosage: OMEPRAZOLE OTC
     Route: 048
     Dates: start: 2013
  10. PRILOSEC [Suspect]
     Indication: DYSPEPSIA
     Route: 048
     Dates: start: 2013
  11. PRILOSEC [Suspect]
     Indication: HELICOBACTER INFECTION
     Route: 048
     Dates: start: 2013
  12. METFORMIN [Concomitant]
     Indication: BLOOD GLUCOSE ABNORMAL
     Route: 048
     Dates: start: 2002
  13. SIMVASTATIN [Concomitant]
     Indication: BLOOD CHOLESTEROL
     Route: 048
     Dates: start: 2002
  14. PRADAXA [Concomitant]
     Indication: HEART RATE IRREGULAR
     Route: 048
     Dates: start: 2002
  15. AMADORIAN [Concomitant]
     Indication: HEART RATE IRREGULAR
     Route: 048
     Dates: start: 2002
  16. ZANTAC [Concomitant]

REACTIONS (5)
  - Diarrhoea [Recovered/Resolved]
  - Dysphagia [Unknown]
  - Nasopharyngitis [Unknown]
  - Dyspepsia [Not Recovered/Not Resolved]
  - Cough [Unknown]
